FAERS Safety Report 23768257 (Version 2)
Quarter: 2024Q2

REPORT INFORMATION
  Report Type: Spontaneous
  Country: CN (occurrence: CN)
  Receive Date: 20240422
  Receipt Date: 20240425
  Transmission Date: 20240716
  Serious: Yes (Hospitalization)
  Sender: FDA-Public Use
  Company Number: CN-GLAXOSMITHKLINE-CN2024APC048511

PATIENT

DRUGS (5)
  1. LAMICTAL [Suspect]
     Active Substance: LAMOTRIGINE
     Indication: Anxiety
     Dosage: 12.5 MG, QD
  2. LAMICTAL [Suspect]
     Active Substance: LAMOTRIGINE
     Dosage: 50 MG, QD
     Route: 048
     Dates: start: 20240330, end: 20240401
  3. ACETAMINOPHEN\AMANTADINE\BOS TAURUS GALLSTONE\CAFFEINE\CHLORPHENIRAMIN [Suspect]
     Active Substance: ACETAMINOPHEN\AMANTADINE\BOS TAURUS GALLSTONE\CAFFEINE\CHLORPHENIRAMINE
     Indication: Upper respiratory tract infection
     Dosage: 1 DF, QD
     Route: 048
     Dates: start: 20240401, end: 20240401
  4. GLYCYRRHIZIN [Concomitant]
     Active Substance: GLYCYRRHIZIN
     Indication: Liver disorder
     Dosage: UNK
  5. LAMOTRIGINE [Concomitant]
     Active Substance: LAMOTRIGINE
     Indication: Product used for unknown indication
     Dosage: UNK
     Dates: end: 20240402

REACTIONS (14)
  - Pyrexia [Recovered/Resolved]
  - Nasopharyngitis [Unknown]
  - Cough [Unknown]
  - Rash maculo-papular [Recovering/Resolving]
  - Hepatic function abnormal [Recovering/Resolving]
  - Face oedema [Recovering/Resolving]
  - Skin oedema [Unknown]
  - Erythema [Recovered/Resolved]
  - Bronchitis [Unknown]
  - Dermatitis allergic [Unknown]
  - Pruritus [Recovering/Resolving]
  - Sleep disorder due to a general medical condition [Unknown]
  - Oedema peripheral [Not Recovered/Not Resolved]
  - Lymph node palpable [Unknown]

NARRATIVE: CASE EVENT DATE: 20240402
